FAERS Safety Report 17871608 (Version 1)
Quarter: 2020Q2

REPORT INFORMATION
  Report Type: Spontaneous
  Country: US (occurrence: US)
  Receive Date: 20200608
  Receipt Date: 20200608
  Transmission Date: 20200714
  Serious: Yes (Life-Threatening, Hospitalization)
  Sender: FDA-Public Use
  Company Number: US-TEVA-2020-US-1245371

PATIENT
  Age: 45 Year
  Sex: Female

DRUGS (2)
  1. HYDRALAZINE [Suspect]
     Active Substance: HYDRALAZINE HYDROCHLORIDE
     Indication: HYPERTENSION
     Dosage: SHE HAD BEEN RECEIVING 100MG HYDRALAZINE [INITIAL DOSAGE NOT STATED], WHICH HAD BEEN INCREASED
     Route: 065
  2. PROCHLORPERAZINE. [Suspect]
     Active Substance: PROCHLORPERAZINE
     Indication: NAUSEA
     Route: 065

REACTIONS (4)
  - Oropharyngeal oedema [Unknown]
  - Angioedema [Unknown]
  - Anti-neutrophil cytoplasmic antibody positive vasculitis [Recovering/Resolving]
  - Cardiac arrest [Recovered/Resolved]
